FAERS Safety Report 16531157 (Version 2)
Quarter: 2020Q1

REPORT INFORMATION
  Report Type: Spontaneous
  Country: US (occurrence: US)
  Receive Date: 20190705
  Receipt Date: 20200224
  Transmission Date: 20200409
  Serious: Yes (Other)
  Sender: FDA-Public Use
  Company Number: US-PFIZER INC-2019287340

PATIENT
  Age: 52 Year
  Sex: Male
  Weight: 51.25 kg

DRUGS (2)
  1. DILANTIN [Suspect]
     Active Substance: PHENYTOIN
     Dosage: 250 MG, DAILY
  2. DILANTIN [Suspect]
     Active Substance: PHENYTOIN
     Indication: SEIZURE
     Dosage: 100 MG, UNK

REACTIONS (4)
  - Hemiplegia [Unknown]
  - Visual field defect [Unknown]
  - Blindness [Unknown]
  - Deafness [Unknown]
